FAERS Safety Report 8582210 (Version 2)
Quarter: 2013Q4

REPORT INFORMATION
  Report Type: Report from Study
  Country: US (occurrence: US)
  Receive Date: 20120528
  Receipt Date: 20131204
  Transmission Date: 20140711
  Serious: Yes (Other)
  Sender: FDA-Public Use
  Company Number: US-ELI_LILLY_AND_COMPANY-US201204000580

PATIENT
  Age: 71 Year
  Sex: Female

DRUGS (2)
  1. TERIPARATIDE [Suspect]
     Indication: PRODUCT USED FOR UNKNOWN INDICATION
     Dosage: 20 UG, QD
     Route: 058
  2. TERIPARATIDE [Suspect]
     Dosage: 20 UG, QD
     Route: 058

REACTIONS (5)
  - Intestinal obstruction [Unknown]
  - Anaemia [Unknown]
  - Heart rate abnormal [Unknown]
  - Asthenia [Unknown]
  - Vomiting [Unknown]
